FAERS Safety Report 6254818-3 (Version None)
Quarter: 2009Q2

REPORT INFORMATION
  Report Type: 
  Country: None (occurrence: None)
  Receive Date: 20090630
  Receipt Date: 20090618
  Transmission Date: 20091009
  Serious: Yes (Hospitalization, Other)
  Sender: FDA-Public Use
  Company Number: 2009AL004199

PATIENT
  Sex: Female

DRUGS (2)
  1. DICLOFENAC SODIUM [Suspect]
     Indication: PAIN
  2. XARELTO [Concomitant]

REACTIONS (8)
  - ABDOMINAL DISCOMFORT [None]
  - CONTUSION [None]
  - GASTROOESOPHAGEAL REFLUX DISEASE [None]
  - HAEMATOMA [None]
  - HAEMORRHAGE [None]
  - JOINT SWELLING [None]
  - POOR QUALITY SLEEP [None]
  - WOUND SECRETION [None]
